FAERS Safety Report 5648469-9 (Version None)
Quarter: 2008Q1

REPORT INFORMATION
  Report Type: 
  Country: None (occurrence: None)
  Receive Date: 20080304
  Receipt Date: 20080225
  Transmission Date: 20080703
  Serious: Yes (Other)
  Sender: FDA-Public Use
  Company Number: PHBS2008HU02638

PATIENT
  Age: 49 Year
  Sex: Female

DRUGS (4)
  1. ZOMETA [Suspect]
     Indication: METASTASES TO BONE
     Dosage: 4 MG/4 WEEKS
  2. GEMZAR [Concomitant]
     Indication: LUNG NEOPLASM MALIGNANT
     Dates: start: 20061222, end: 20070410
  3. CISPLATIN [Concomitant]
     Indication: LUNG NEOPLASM MALIGNANT
     Dates: start: 20061222, end: 20070410
  4. PACLITAXEL [Concomitant]
     Indication: LUNG NEOPLASM MALIGNANT
     Dates: start: 20070817, end: 20071010

REACTIONS (2)
  - OSTEOMYELITIS [None]
  - OSTEONECROSIS [None]
